FAERS Safety Report 13879806 (Version 1)
Quarter: 2017Q3

REPORT INFORMATION
  Report Type: Spontaneous
  Country: CA (occurrence: CA)
  Receive Date: 20170818
  Receipt Date: 20170818
  Transmission Date: 20171127
  Serious: Yes (Hospitalization, Disabling)
  Sender: FDA-Public Use
  Company Number: CA-JNJFOC-20170726071

PATIENT
  Age: 46 Year
  Sex: Female

DRUGS (1)
  1. RISPERDAL CONSTA [Suspect]
     Active Substance: RISPERIDONE
     Indication: PRODUCT USED FOR UNKNOWN INDICATION
     Route: 030

REACTIONS (7)
  - Pallor [Unknown]
  - Eye movement disorder [Unknown]
  - Radial pulse abnormal [Unknown]
  - Dizziness [Unknown]
  - Immobile [Unknown]
  - Fall [Unknown]
  - Headache [Unknown]
